FAERS Safety Report 10241316 (Version 5)
Quarter: 2017Q4

REPORT INFORMATION
  Report Type: Spontaneous
  Country: US (occurrence: US)
  Receive Date: 20140617
  Receipt Date: 20171213
  Transmission Date: 20180320
  Serious: Yes (Disabling)
  Sender: FDA-Public Use
  Company Number: US-009507513-1406USA007845

PATIENT
  Sex: Male
  Weight: 68.27 kg

DRUGS (1)
  1. PROPECIA [Suspect]
     Active Substance: FINASTERIDE
     Indication: ALOPECIA
     Dosage: 1 MG, QD
     Route: 048
     Dates: start: 20040720, end: 20100714

REACTIONS (16)
  - Erectile dysfunction [Recovering/Resolving]
  - Genital hypoaesthesia [Unknown]
  - Drug ineffective [Unknown]
  - Ejaculation failure [Recovering/Resolving]
  - Peyronie^s disease [Unknown]
  - Testicular pain [Unknown]
  - Ejaculation disorder [Recovering/Resolving]
  - Sexual dysfunction [Not Recovered/Not Resolved]
  - Adverse event [Unknown]
  - Scrotal pain [Unknown]
  - Depression [Not Recovered/Not Resolved]
  - Tonsillectomy [Unknown]
  - Gastrooesophageal reflux disease [Unknown]
  - Libido decreased [Not Recovered/Not Resolved]
  - Hypogonadism [Unknown]
  - Thinking abnormal [Unknown]

NARRATIVE: CASE EVENT DATE: 2006
